FAERS Safety Report 7929052-9 (Version None)
Quarter: 2011Q4

REPORT INFORMATION
  Report Type: 
  Country: None (occurrence: None)
  Receive Date: 20111119
  Receipt Date: 20111109
  Transmission Date: 20120403
  Serious: Yes (Hospitalization, Other)
  Sender: FDA-Public Use
  Company Number: US-ASTRAZENECA-2011SE56957

PATIENT
  Age: 41 Year
  Sex: Female
  Weight: 49.9 kg

DRUGS (35)
  1. XANAX [Concomitant]
     Dates: start: 20111027
  2. CELEXA [Concomitant]
  3. HYOSCYAMINE SULFATE [Concomitant]
     Dates: start: 20111027
  4. ALLEGRA [Concomitant]
     Indication: HYPERSENSITIVITY
  5. VITAMIN B-12 [Concomitant]
  6. TRAMADOL HCL [Concomitant]
     Dosage: 50 MG, AS DIRECTED. Q4 HR PRN
  7. PRILOSEC [Suspect]
     Route: 048
  8. XANAX [Concomitant]
  9. PREDNISONE TAB [Concomitant]
  10. VICODIN [Concomitant]
     Dosage: 7.5/750 MG, EVERY 4-6 HOURS
     Route: 042
  11. NEXIUM [Suspect]
     Route: 048
  12. PRILOSEC [Suspect]
     Route: 048
  13. ALIGN [Concomitant]
  14. ALLEGRA [Concomitant]
  15. AMBIEN [Concomitant]
  16. LEVSIN [Concomitant]
  17. NYSTATIN [Concomitant]
     Dosage: 100000 UNIT/ML 4 ML, FOUR TIMES A DAY
  18. ZOFRAN [Concomitant]
     Dates: start: 20111027
  19. CARAFATE [Concomitant]
     Dosage: 1 GM/ 10 ML, 10 ML PRN
  20. PRILOSEC [Suspect]
     Route: 048
  21. ENTOCORT EC [Concomitant]
     Route: 048
  22. MIRALAX [Concomitant]
  23. MIRALAX [Concomitant]
     Dosage: TWO TIMES A DAY
  24. REMERON [Concomitant]
  25. PREDNISONE TAB [Concomitant]
  26. CALCIUM [Concomitant]
  27. DIFLUCAN [Concomitant]
  28. PRILOSEC [Suspect]
     Route: 048
  29. XANAX [Concomitant]
  30. CYMBALTA [Concomitant]
  31. PENTASA [Concomitant]
     Dates: start: 20111027
  32. METAMUCIL-2 [Concomitant]
  33. PREDNISONE TAB [Concomitant]
  34. PREDNISONE TAB [Concomitant]
     Dosage: ONE HALF TABLETS TWICE DAILY
  35. AZATHIOPRINE [Concomitant]

REACTIONS (44)
  - ANXIETY [None]
  - GASTRIC POLYPS [None]
  - GASTROOESOPHAGEAL REFLUX DISEASE [None]
  - MENORRHAGIA [None]
  - HEADACHE [None]
  - NAUSEA [None]
  - DRUG INEFFECTIVE [None]
  - ABDOMINAL DISTENSION [None]
  - DECREASED APPETITE [None]
  - CHILLS [None]
  - DYSURIA [None]
  - HAEMANGIOMA [None]
  - REGURGITATION [None]
  - APHTHOUS STOMATITIS [None]
  - DRUG DOSE OMISSION [None]
  - EROSIVE OESOPHAGITIS [None]
  - CROHN'S DISEASE [None]
  - HYPERCHLORHYDRIA [None]
  - DRY SKIN [None]
  - HAEMATURIA [None]
  - SINUS OPERATION [None]
  - WEIGHT DECREASED [None]
  - CONSTIPATION [None]
  - VOMITING [None]
  - GASTRIC ULCER [None]
  - FLANK PAIN [None]
  - IRRITABLE BOWEL SYNDROME [None]
  - PRURITUS [None]
  - PANCREATITIS ACUTE [None]
  - IRON DEFICIENCY ANAEMIA [None]
  - BACK PAIN [None]
  - BRONCHITIS [None]
  - IMPAIRED GASTRIC EMPTYING [None]
  - DEPRESSION [None]
  - COLONIC POLYP [None]
  - DUODENITIS [None]
  - FATIGUE [None]
  - DEHYDRATION [None]
  - GASTRITIS [None]
  - CHEST PAIN [None]
  - SINUSITIS [None]
  - ABDOMINAL PAIN [None]
  - DIARRHOEA [None]
  - PYREXIA [None]
